FAERS Safety Report 8839176 (Version 1)
Quarter: 2012Q4

REPORT INFORMATION
  Report Type: 
  Country: US (occurrence: US)
  Receive Date: 20121015
  Receipt Date: 20121015
  Transmission Date: 20130627
  Serious: Yes (Hospitalization, Other)
  Sender: FDA-Public Use
  Company Number: US-ELI_LILLY_AND_COMPANY-US201208003814

PATIENT
  Sex: Female

DRUGS (1)
  1. HUMULIN REGULAR [Suspect]
     Indication: DIABETES MELLITUS

REACTIONS (1)
  - Syncope [Unknown]
